FAERS Safety Report 6068678-7 (Version None)
Quarter: 2009Q1

REPORT INFORMATION
  Report Type: 
  Country: None (occurrence: None)
  Receive Date: 20090206
  Receipt Date: 20090130
  Transmission Date: 20090719
  Serious: Yes (Other)
  Sender: FDA-Public Use
  Company Number: B0546358A

PATIENT
  Age: 72 Year
  Sex: Female

DRUGS (3)
  1. REQUIP [Suspect]
     Indication: PARKINSON'S DISEASE
     Dosage: 18MG PER DAY
     Route: 048
     Dates: start: 20081102
  2. STALEVO 100 [Concomitant]
     Dosage: 50MG TWICE PER DAY
     Route: 065
  3. SINEMET CR [Concomitant]
     Dosage: 1TAB TWICE PER DAY
     Route: 065

REACTIONS (1)
  - MUSCLE RIGIDITY [None]
